FAERS Safety Report 4706485-5 (Version None)
Quarter: 2005Q3

REPORT INFORMATION
  Report Type: 
  Country: None (occurrence: None)
  Receive Date: 20050705
  Receipt Date: 20050625
  Transmission Date: 20060218
  Serious: Yes (Other)
  Sender: FDA-Public Use
  Company Number: GB-GLAXOSMITHKLINE-B0385677A

PATIENT
  Age: 77 Year
  Sex: Male
  Weight: 97 kg

DRUGS (6)
  1. AVODART [Suspect]
     Dosage: 500MG PER DAY
     Route: 048
     Dates: start: 20050126, end: 20050510
  2. TEMAZEPAM [Concomitant]
     Indication: INSOMNIA
     Dosage: 10MG PER DAY
     Route: 048
  3. ROSIGLITAZONE [Concomitant]
     Indication: DIABETES MELLITUS
     Dosage: 4MG PER DAY
     Route: 048
  4. GLIMEPIRIDE [Concomitant]
     Indication: DIABETES MELLITUS
     Dosage: 3MG PER DAY
     Route: 048
  5. INDORAMIN [Concomitant]
     Dosage: 20MG PER DAY
     Route: 048
  6. METFORMIN [Concomitant]
     Indication: DIABETES MELLITUS
     Dosage: 850MG PER DAY
     Route: 048

REACTIONS (1)
  - MYALGIA [None]
